FAERS Safety Report 8332661-9 (Version None)
Quarter: 2012Q1

REPORT INFORMATION
  Report Type: 
  Country: None (occurrence: None)
  Receive Date: 20120327
  Receipt Date: 20110228
  Transmission Date: 20120608
  Serious: Yes (Other)
  Sender: FDA-Public Use
  Company Number: PHEH2009US18622

PATIENT
  Age: 62 Year
  Sex: Female
  Weight: 95.2 kg

DRUGS (10)
  1. TOPROL-XL [Concomitant]
  2. LABETALOL HYDROCHLORIDE [Concomitant]
  3. COUMADIN [Concomitant]
  4. GLEEVEC [Suspect]
     Indication: CHRONIC MYELOID LEUKAEMIA
     Dosage: 400 MG, QD, ORAL; 400 MG, DAILY, ORAL; 400 MG, DAILY, ORAL
     Route: 048
     Dates: start: 20080301
  5. GLEEVEC [Suspect]
     Indication: CHRONIC MYELOID LEUKAEMIA
     Dosage: 400 MG, QD, ORAL; 400 MG, DAILY, ORAL; 400 MG, DAILY, ORAL
     Route: 048
     Dates: start: 20070301
  6. GLEEVEC [Suspect]
     Indication: CHRONIC MYELOID LEUKAEMIA
     Dosage: 400 MG, QD, ORAL; 400 MG, DAILY, ORAL; 400 MG, DAILY, ORAL
     Route: 048
     Dates: start: 20060309
  7. ZOFRAN [Concomitant]
  8. CALTRATE 600 + VITAMIN D (CALCIUM CARBONATE, ERGOCALCIFEROL) [Concomitant]
  9. MAGNESIUM [Concomitant]
  10. SYNTHROID [Concomitant]

REACTIONS (14)
  - GAIT DISTURBANCE [None]
  - ATRIAL FIBRILLATION [None]
  - HEART RATE ABNORMAL [None]
  - RASH [None]
  - OEDEMA [None]
  - NAUSEA [None]
  - BLOOD URIC ACID INCREASED [None]
  - MUSCLE RIGIDITY [None]
  - DIARRHOEA [None]
  - PARAESTHESIA [None]
  - BONE PAIN [None]
  - MUSCLE SPASMS [None]
  - MYALGIA [None]
  - FLUID RETENTION [None]
